FAERS Safety Report 5287833-7 (Version None)
Quarter: 2007Q2

REPORT INFORMATION
  Report Type: 
  Country: None (occurrence: None)
  Receive Date: 20070405
  Receipt Date: 20070327
  Transmission Date: 20071010
  Serious: Yes (Life-Threatening, Hospitalization)
  Sender: FDA-Public Use
  Company Number: FR-SANOFI-SYNTHELABO-A02200700901

PATIENT
  Age: 54 Year
  Sex: Male

DRUGS (5)
  1. FLUOROURACIL [Suspect]
     Indication: RECTAL CANCER
     Route: 040
     Dates: start: 20061211, end: 20061211
  2. FLUOROURACIL [Suspect]
     Route: 041
     Dates: start: 20061211, end: 20061213
  3. VENTOLIN [Concomitant]
     Indication: ASTHMA
     Dosage: UNK
     Route: 065
  4. SERETIDE [Concomitant]
     Indication: ASTHMA
     Dosage: UNK
     Route: 055
  5. ELOXATIN [Suspect]
     Indication: RECTAL CANCER
     Route: 042
     Dates: start: 20061211, end: 20061211

REACTIONS (1)
  - CARDIOGENIC SHOCK [None]
